FAERS Safety Report 6750365-0 (Version None)
Quarter: 2010Q2

REPORT INFORMATION
  Report Type: 
  Country: None (occurrence: None)
  Receive Date: 20100601
  Receipt Date: 20100520
  Transmission Date: 20101027
  Serious: Yes (Hospitalization)
  Sender: FDA-Public Use
  Company Number: PHHY2010US28789

PATIENT
  Age: 37 Year
  Sex: Female
  Weight: 55 kg

DRUGS (6)
  1. NEORAL [Suspect]
     Indication: RENAL TRANSPLANT
     Dosage: 300 MG DAILY
     Route: 048
     Dates: start: 19970106
  2. COZAAR [Concomitant]
     Indication: HYPERTENSION
     Dosage: 25 MG DAILY
     Route: 048
     Dates: start: 19980414
  3. PREDNISONE [Concomitant]
     Indication: PROPHYLAXIS AGAINST TRANSPLANT REJECTION
     Dosage: 100 MG DAILY
     Route: 048
     Dates: start: 19970128
  4. CATAPRES-TTS-1 [Concomitant]
     Indication: HYPERTENSION
     Dosage: 1 OTHER WEEKLY
     Dates: start: 20000404
  5. CELLCEPT [Concomitant]
     Dosage: 2000 MG DAILY
     Route: 048
     Dates: start: 19970107, end: 20081028
  6. ESTRADIOL [Concomitant]
     Indication: HYSTERECTOMY
     Dosage: 0.05 MG, QD
     Route: 062
     Dates: start: 19960610

REACTIONS (1)
  - INTESTINAL PERFORATION [None]
